FAERS Safety Report 5873794-6 (Version None)
Quarter: 2008Q3

REPORT INFORMATION
  Report Type: 
  Country: None (occurrence: None)
  Receive Date: 20080903
  Receipt Date: 20080903
  Transmission Date: 20090109
  Serious: Yes (Hospitalization)
  Sender: FDA-Public Use
  Company Number: None

PATIENT
  Age: 50 Year
  Sex: Male
  Weight: 98.3852 kg

DRUGS (3)
  1. KETOROLAC TROMETHAMINE [Suspect]
     Indication: CHEST PAIN
     Dosage: 30 MG ONE TIME IM
     Route: 030
     Dates: start: 20080623, end: 20080623
  2. KETOROLAC TROMETHAMINE [Suspect]
     Indication: MUSCULOSKELETAL PAIN
     Dosage: 30 MG ONE TIME IM
     Route: 030
     Dates: start: 20080623, end: 20080623
  3. GI COCKTAIL -DONNATAL:MYLANTA:LIDOCAINE [Concomitant]

REACTIONS (5)
  - BLOOD PRESSURE INCREASED [None]
  - FLUSHING [None]
  - OXYGEN SATURATION DECREASED [None]
  - SWOLLEN TONGUE [None]
  - THROAT TIGHTNESS [None]
